FAERS Safety Report 6187661-4 (Version None)
Quarter: 2009Q2

REPORT INFORMATION
  Report Type: 
  Country: None (occurrence: None)
  Receive Date: 20090511
  Receipt Date: 20090429
  Transmission Date: 20091009
  Serious: Yes (Hospitalization, Other)
  Sender: FDA-Public Use
  Company Number: 234495K09USA

PATIENT
  Age: 48 Year
  Sex: Female

DRUGS (2)
  1. REBIF [Suspect]
     Indication: MULTIPLE SCLEROSIS
     Dosage: 44 MCG, 3 IN 1 WEEKS, SUBCUTANEOUS
     Route: 058
     Dates: start: 20060503
  2. MOTRIN [Concomitant]

REACTIONS (6)
  - ERYTHEMA [None]
  - PELVIC PAIN [None]
  - POST PROCEDURAL COMPLICATION [None]
  - RASH MACULAR [None]
  - SCAR [None]
  - UTERINE LEIOMYOMA [None]
